FAERS Safety Report 4661675-5 (Version None)
Quarter: 2005Q2

REPORT INFORMATION
  Report Type: 
  Country: None (occurrence: None)
  Receive Date: 20050513
  Receipt Date: 20030324
  Transmission Date: 20051028
  Serious: Yes (Hospitalization, Disabling)
  Sender: FDA-Public Use
  Company Number: US-BRISTOL-MYERS SQUIBB COMPANY-12200598

PATIENT
  Age: 47 Year
  Sex: Male
  Weight: 54 kg

DRUGS (3)
  1. CISPLATIN [Suspect]
     Indication: SQUAMOUS CELL CARCINOMA
     Route: 042
     Dates: start: 20001207, end: 20001228
  2. CETUXIMAB [Suspect]
     Indication: SQUAMOUS CELL CARCINOMA
     Route: 042
     Dates: start: 20001207, end: 20001228
  3. TYLENOL W/ CODEINE [Concomitant]
     Indication: PAIN

REACTIONS (4)
  - CATHETER RELATED INFECTION [None]
  - DEHYDRATION [None]
  - NEUTROPENIA [None]
  - WEIGHT DECREASED [None]
